FAERS Safety Report 9192584 (Version 1)
Quarter: 2013Q1

REPORT INFORMATION
  Report Type: Spontaneous
  Country: JP (occurrence: JP)
  Receive Date: 20130327
  Receipt Date: 20130327
  Transmission Date: 20140127
  Serious: Yes (Other)
  Sender: FDA-Public Use
  Company Number: JP-ELI_LILLY_AND_COMPANY-JP201303005507

PATIENT
  Age: 45 Year
  Sex: Male

DRUGS (3)
  1. CYMBALTA [Suspect]
     Indication: DEPRESSION
     Dosage: 20 MG, QD
     Route: 048
  2. REFLEX                             /01293201/ [Concomitant]
     Indication: DEPRESSION
     Dosage: UNK
  3. TEGRETOL [Concomitant]
     Dosage: UNK
     Dates: start: 20130311, end: 20130313

REACTIONS (1)
  - Blood creatine phosphokinase increased [Recovered/Resolved]
